FAERS Safety Report 6532615-9 (Version None)
Quarter: 2010Q1

REPORT INFORMATION
  Report Type: 
  Country: None (occurrence: None)
  Receive Date: 20100111
  Receipt Date: 20100104
  Transmission Date: 20100710
  Serious: Yes (Hospitalization)
  Sender: FDA-Public Use
  Company Number: CO-ELI_LILLY_AND_COMPANY-CO200912003816

PATIENT
  Age: 70 Year
  Sex: Female
  Weight: 95 kg

DRUGS (13)
  1. BYETTA [Suspect]
     Indication: TYPE 2 DIABETES MELLITUS
     Dosage: 10 UG, DAILY (1/D)
     Route: 058
     Dates: start: 20070813
  2. BYETTA [Suspect]
     Dosage: 10 UG, 2/D
     Route: 058
  3. LANTUS [Concomitant]
     Dosage: UNK, UNKNOWN
     Route: 065
  4. LOSARTAN [Concomitant]
     Dosage: UNK, UNKNOWN
     Route: 065
  5. DILTIAZEM [Concomitant]
     Indication: ARRHYTHMIA
     Dosage: UNK, UNKNOWN
     Route: 065
  6. OMEPRAZOLE [Concomitant]
     Dosage: UNK, UNKNOWN
     Route: 065
  7. LOVAZA [Concomitant]
     Dosage: UNK, UNKNOWN
     Route: 065
  8. GLUCOSAMINE [Concomitant]
     Dosage: UNK, UNKNOWN
     Route: 065
  9. LEVOTHYROXINE SODIUM [Concomitant]
     Dosage: 150 MG, UNKNOWN
     Route: 065
  10. DAFLON 500 [Concomitant]
     Dosage: UNK, UNKNOWN
     Route: 065
  11. SALMETEROL XINAFOATE [Concomitant]
     Dosage: UNK, UNKNOWN
     Route: 065
  12. SERETIDE [Concomitant]
     Dosage: UNK, UNKNOWN
     Route: 065
  13. SINGULAIR [Concomitant]
     Dosage: UNK, UNKNOWN
     Route: 065

REACTIONS (5)
  - ARRHYTHMIA [None]
  - DIZZINESS [None]
  - HYPOAESTHESIA [None]
  - INTENTIONAL DRUG MISUSE [None]
  - VERTIGO [None]
